FAERS Safety Report 14987194 (Version 2)
Quarter: 2018Q2

REPORT INFORMATION
  Report Type: Spontaneous
  Country: GB (occurrence: GB)
  Receive Date: 20180608
  Receipt Date: 20180615
  Transmission Date: 20180711
  Serious: Yes (Hospitalization, Congenital Anomaly, Other)
  Sender: FDA-Public Use
  Company Number: GB-AUROBINDO-AUR-APL-2018-029514

PATIENT
  Age: 32 Year
  Sex: Female

DRUGS (3)
  1. ISOSORBIDE MONONITRATE. [Suspect]
     Active Substance: ISOSORBIDE MONONITRATE
     Indication: ESSENTIAL HYPERTENSION
     Dosage: UNKNOWN
     Route: 065
  2. CHLORPROMAZINE. [Suspect]
     Active Substance: CHLORPROMAZINE
     Indication: DEPRESSION
     Dosage: UNKNOWN
     Route: 065
  3. SERTRALINE [Suspect]
     Active Substance: SERTRALINE HYDROCHLORIDE
     Indication: DEPRESSION
     Dosage: UNKNOWN
     Route: 065

REACTIONS (6)
  - Induced labour [Unknown]
  - Product use in unapproved indication [Unknown]
  - Exposure during pregnancy [Recovered/Resolved]
  - Foetal death [Unknown]
  - Depression [Unknown]
  - Oligohydramnios [Unknown]
